FAERS Safety Report 19725385 (Version 3)
Quarter: 2021Q3

REPORT INFORMATION
  Report Type: Spontaneous
  Country: TR (occurrence: TR)
  Receive Date: 20210820
  Receipt Date: 20210907
  Transmission Date: 20211014
  Serious: Yes (Life-Threatening)
  Sender: FDA-Public Use
  Company Number: TR-CELLTRION INC.-2021TR011097

PATIENT

DRUGS (3)
  1. VANCOTEK [Concomitant]
     Indication: INFECTION
     Dosage: 2 G
     Route: 042
     Dates: start: 20210702
  2. VIRENTE [Concomitant]
     Indication: INFECTION
     Dosage: 1 UNK
     Route: 048
     Dates: start: 20210702
  3. TRUXIMA [Suspect]
     Active Substance: RITUXIMAB-ABBS
     Indication: B-CELL LYMPHOMA
     Dosage: 700 MG
     Dates: start: 20210702, end: 20210702

REACTIONS (4)
  - Dyspnoea [Recovered/Resolved]
  - Underdose [Unknown]
  - Throat irritation [Recovered/Resolved]
  - Erythema [Recovered/Resolved]

NARRATIVE: CASE EVENT DATE: 20210702
